FAERS Safety Report 5179415-2 (Version None)
Quarter: 2006Q4

REPORT INFORMATION
  Report Type: 
  Country: None (occurrence: None)
  Receive Date: 20061219
  Receipt Date: 20061211
  Transmission Date: 20070319
  Serious: Yes (Life-Threatening, Hospitalization)
  Sender: FDA-Public Use
  Company Number: GB-ROCHE-474830

PATIENT
  Age: 47 Year
  Sex: Male

DRUGS (7)
  1. NAPROSYN [Suspect]
     Indication: DRUG USE FOR UNKNOWN INDICATION
     Route: 048
     Dates: end: 20060926
  2. DICLOFENAC SODIUM [Suspect]
     Route: 048
     Dates: start: 20060926, end: 20060926
  3. FLUCLOXACILLIN [Suspect]
     Indication: CELLULITIS
     Route: 048
     Dates: start: 20060926, end: 20060929
  4. PENICILLIN [Suspect]
     Indication: CELLULITIS
     Route: 048
     Dates: start: 20060926, end: 20060929
  5. PENICILLIN G [Concomitant]
     Route: 042
  6. FLUCLOXACILLIN [Concomitant]
     Route: 065
  7. ACETAMINOPHEN [Concomitant]
     Route: 048
     Dates: start: 20060926

REACTIONS (4)
  - BLOOD CREATININE INCREASED [None]
  - NEPHRITIS INTERSTITIAL [None]
  - RENAL FAILURE ACUTE [None]
  - RENAL TUBULAR NECROSIS [None]
